FAERS Safety Report 17821841 (Version 2)
Quarter: 2020Q2

REPORT INFORMATION
  Report Type: Report from Study
  Country: US (occurrence: US)
  Receive Date: 20200525
  Receipt Date: 20200528
  Transmission Date: 20200714
  Serious: No
  Sender: FDA-Public Use
  Company Number: US-BRISTOL-MYERS SQUIBB COMPANY-BMS-2020-040140

PATIENT
  Age: 66 Year
  Sex: Male
  Weight: 74.84 kg

DRUGS (2)
  1. ABATACEPT [Suspect]
     Active Substance: ABATACEPT
     Indication: RHEUMATOID ARTHRITIS
     Dosage: UNK UNK, QWK
     Route: 065
     Dates: start: 201902, end: 20200515
  2. VITAMINS NOS [Concomitant]
     Active Substance: VITAMINS
     Indication: PRODUCT USED FOR UNKNOWN INDICATION
     Dosage: UNK
     Route: 065

REACTIONS (8)
  - Disturbance in attention [Unknown]
  - Poor quality sleep [Unknown]
  - Anxiety [Unknown]
  - Hypertension [Unknown]
  - Fatigue [Unknown]
  - Back pain [Unknown]
  - Tremor [Unknown]
  - Eating disorder [Unknown]

NARRATIVE: CASE EVENT DATE: 20200519
